FAERS Safety Report 22329519 (Version 1)
Quarter: 2023Q2

REPORT INFORMATION
  Report Type: Spontaneous
  Country: None (occurrence: GB)
  Receive Date: 20230517
  Receipt Date: 20230517
  Transmission Date: 20230722
  Serious: Yes (Death, Other)
  Sender: FDA-Public Use
  Company Number: GB-Tamarang, S.A.-2141567

PATIENT
  Age: 17 Year
  Sex: Female

DRUGS (1)
  1. ROCURONIUM BROMIDE [Suspect]
     Active Substance: ROCURONIUM BROMIDE
     Indication: Tonsillectomy

REACTIONS (2)
  - Anaphylactic reaction [Fatal]
  - Post procedural haemorrhage [Fatal]
